FAERS Safety Report 7138624-3 (Version None)
Quarter: 2010Q4

REPORT INFORMATION
  Report Type: 
  Country: None (occurrence: None)
  Receive Date: 20101122
  Receipt Date: 20101111
  Transmission Date: 20110411
  Serious: Yes (Hospitalization)
  Sender: FDA-Public Use
  Company Number: 2010110007

PATIENT
  Age: 55 Year
  Sex: Female
  Weight: 87.0906 kg

DRUGS (10)
  1. ONSOLIS [Suspect]
     Indication: CANCER PAIN
     Dosage: SEE IMAGE
     Route: 002
     Dates: start: 20100505, end: 20101011
  2. ONSOLIS [Suspect]
     Indication: CANCER PAIN
     Dosage: SEE IMAGE
     Route: 002
     Dates: start: 20101012
  3. ONSOLIS [Suspect]
  4. DIAZEPAM [Concomitant]
  5. OXYCONTIN [Concomitant]
  6. OXYCODONE HCL [Concomitant]
  7. MARINOL [Concomitant]
  8. OPANA [Concomitant]
  9. GABAPENTIN [Concomitant]
  10. MELOXICAM [Concomitant]

REACTIONS (5)
  - CONDITION AGGRAVATED [None]
  - INCORRECT DOSE ADMINISTERED [None]
  - PAIN [None]
  - PLEURAL EFFUSION [None]
  - RADIATION INJURY [None]
